FAERS Safety Report 10512511 (Version 1)
Quarter: 2014Q4

REPORT INFORMATION
  Report Type: Spontaneous
  Country: US (occurrence: US)
  Receive Date: 20141011
  Receipt Date: 20141011
  Transmission Date: 20150528
  Serious: No
  Sender: FDA-Public Use
  Company Number: US-009507513-1410USA000749

PATIENT
  Age: 21 Year
  Sex: Female
  Weight: 90.7 kg

DRUGS (1)
  1. IMPLANON [Suspect]
     Active Substance: ETONOGESTREL
     Indication: CONTRACEPTION
     Dosage: 1 ROD/3 YEAR
     Route: 059
     Dates: start: 2011

REACTIONS (4)
  - Weight increased [Unknown]
  - Incorrect drug administration duration [Unknown]
  - Implant site pain [Unknown]
  - Breast pain [Unknown]

NARRATIVE: CASE EVENT DATE: 201408
